FAERS Safety Report 4974362-0 (Version None)
Quarter: 2006Q2

REPORT INFORMATION
  Report Type: 
  Country: None (occurrence: None)
  Receive Date: 20060417
  Receipt Date: 20051207
  Transmission Date: 20061013
  Serious: Yes (Hospitalization)
  Sender: FDA-Public Use
  Company Number: US-MERCK-0512USA01095

PATIENT
  Age: 52 Year
  Sex: Male
  Weight: 110 kg

DRUGS (13)
  1. VIOXX [Suspect]
     Indication: ARTHRALGIA
     Route: 048
     Dates: start: 19991101, end: 20011201
  2. VIOXX [Suspect]
     Indication: INFECTION
     Route: 048
     Dates: start: 19991101, end: 20011201
  3. ACETAMINOPHEN AND HYDROCODONE BITARTRATE [Concomitant]
     Indication: ARTHRALGIA
     Route: 065
  4. GLUCOPHAGE [Concomitant]
     Indication: DIABETES MELLITUS
     Route: 065
  5. LOTENSIN [Concomitant]
     Indication: HYPERTENSION
     Route: 065
  6. PREVACID [Concomitant]
     Indication: DYSPEPSIA
     Route: 065
  7. VEETIDS [Concomitant]
     Route: 065
  8. ROXICET [Concomitant]
     Route: 065
  9. CEPHALEXIN [Concomitant]
     Indication: OSTEOMYELITIS
     Route: 065
  10. FAMVIR [Concomitant]
     Route: 065
  11. BACITRACIN [Concomitant]
     Indication: OSTEOMYELITIS
     Route: 065
  12. GUIATUSS A.C. SYRUP [Concomitant]
     Route: 065
  13. CEFTIN [Concomitant]
     Route: 065

REACTIONS (8)
  - ACUTE MYOCARDIAL INFARCTION [None]
  - CARDIAC ARREST [None]
  - CHEST PAIN [None]
  - CORONARY ARTERY DISEASE [None]
  - COUGH [None]
  - GASTROINTESTINAL ULCER [None]
  - ULCER [None]
  - VENTRICULAR FIBRILLATION [None]
